FAERS Safety Report 18842116 (Version 1)
Quarter: 2021Q1

REPORT INFORMATION
  Report Type: Other
  Country: KR (occurrence: KR)
  Receive Date: 20210204
  Receipt Date: 20210204
  Transmission Date: 20210419
  Serious: Yes (Other)
  Sender: FDA-Public Use
  Company Number: KR-ROCHE-2762856

PATIENT
  Age: 58 Year
  Sex: Male

DRUGS (2)
  1. COBIMETINIB. [Concomitant]
     Active Substance: COBIMETINIB
     Indication: LUNG NEOPLASM MALIGNANT
  2. ATEZOLIZUMAB. [Suspect]
     Active Substance: ATEZOLIZUMAB
     Indication: LUNG NEOPLASM MALIGNANT
     Route: 065

REACTIONS (2)
  - Detachment of retinal pigment epithelium [Unknown]
  - Retinal vein occlusion [Unknown]
